FAERS Safety Report 4884869-2 (Version None)
Quarter: 2006Q1

REPORT INFORMATION
  Report Type: 
  Country: None (occurrence: None)
  Receive Date: 20060119
  Receipt Date: 20060112
  Transmission Date: 20060701
  Serious: Yes (Hospitalization)
  Sender: FDA-Public Use
  Company Number: JP-JPN-A200600164

PATIENT
  Age: 28 Year
  Sex: Female

DRUGS (5)
  1. IMIGRAN [Suspect]
     Indication: MIGRAINE
     Route: 048
     Dates: start: 20051124
  2. IMIGRAN [Suspect]
     Route: 048
     Dates: start: 20051128
  3. IMIGRAN [Suspect]
     Route: 048
     Dates: start: 20051222
  4. GASTER D [Concomitant]
     Route: 048
  5. MUCOSTA [Concomitant]
     Route: 048

REACTIONS (3)
  - CHEST PAIN [None]
  - DYSPNOEA [None]
  - PNEUMONIA [None]
